FAERS Safety Report 13372608 (Version 1)
Quarter: 2017Q1

REPORT INFORMATION
  Report Type: Spontaneous
  Country: GB (occurrence: US)
  Receive Date: 20170326
  Receipt Date: 20170326
  Transmission Date: 20170429
  Serious: Yes (Other)
  Sender: FDA-Public Use
  Company Number: None

PATIENT
  Age: 29 Year
  Sex: Female
  Weight: 60 kg

DRUGS (3)
  1. ANTIHISTAMINES [Suspect]
     Active Substance: ANTIHISTAMINES NOS
  2. MIRENA [Suspect]
     Active Substance: LEVONORGESTREL
  3. STEROID NASAL SPRAY [Concomitant]
     Active Substance: UNSPECIFIED INGREDIENT

REACTIONS (3)
  - Burning sensation [None]
  - Middle insomnia [None]
  - Pain [None]

NARRATIVE: CASE EVENT DATE: 20170317
